FAERS Safety Report 8454950-X (Version None)
Quarter: 2012Q2

REPORT INFORMATION
  Report Type: 
  Country: None (occurrence: None)
  Receive Date: 20120621
  Receipt Date: 20120615
  Transmission Date: 20120825
  Serious: No
  Sender: FDA-Public Use
  Company Number: US-PFIZER INC-2012124875

PATIENT
  Sex: Male

DRUGS (2)
  1. DIFLUCAN [Concomitant]
     Dosage: 200 MG, UNK
     Dates: start: 20120517
  2. VFEND [Suspect]
     Indication: COCCIDIOIDOMYCOSIS
     Dosage: 200 MG, 2X/DAY
     Dates: start: 20120406

REACTIONS (1)
  - SKIN REACTION [None]
